FAERS Safety Report 25521058 (Version 1)
Quarter: 2025Q3

REPORT INFORMATION
  Report Type: Spontaneous
  Country: IN (occurrence: IN)
  Receive Date: 20250705
  Receipt Date: 20250705
  Transmission Date: 20251021
  Serious: Yes (Hospitalization)
  Sender: MACLEODS
  Company Number: IN-MACLEODS PHARMA-MAC2025053860

PATIENT

DRUGS (1)
  1. PREGABALIN [Suspect]
     Active Substance: PREGABALIN
     Indication: Product used for unknown indication
     Dosage: 20 TABLETS OF 300 MG STRENGTH DAILY FOR THE PAST 1.5 YEARS.
     Route: 065

REACTIONS (3)
  - Seizure [Recovered/Resolved]
  - Intentional product misuse [Unknown]
  - Withdrawal syndrome [Recovered/Resolved]
